FAERS Safety Report 6834389-0 (Version None)
Quarter: 2010Q3

REPORT INFORMATION
  Report Type: 
  Country: None (occurrence: None)
  Receive Date: 20100712
  Receipt Date: 20070411
  Transmission Date: 20110219
  Serious: Yes (Hospitalization, Other)
  Sender: FDA-Public Use
  Company Number: US-PFIZER INC-2007029679

PATIENT
  Sex: Female
  Weight: 77.1 kg

DRUGS (4)
  1. CHANTIX [Suspect]
     Indication: EX-TOBACCO USER
     Dates: start: 20070323, end: 20070401
  2. BENADRYL [Suspect]
     Indication: RASH
     Dates: start: 20070406
  3. BENADRYL [Suspect]
     Indication: PRURITUS
  4. ANTIHYPERTENSIVES [Concomitant]

REACTIONS (12)
  - BLOOD PRESSURE INCREASED [None]
  - CARDIAC FLUTTER [None]
  - CHEST PAIN [None]
  - DRUG INEFFECTIVE [None]
  - HEART RATE INCREASED [None]
  - HYPERSENSITIVITY [None]
  - HYPOTENSION [None]
  - PAIN [None]
  - PRURITUS [None]
  - RASH [None]
  - TOBACCO WITHDRAWAL SYMPTOMS [None]
  - TREMOR [None]
